FAERS Safety Report 9688883 (Version 1)
Quarter: 2013Q4

REPORT INFORMATION
  Report Type: Spontaneous
  Country: US (occurrence: None)
  Receive Date: 20131113
  Receipt Date: 20131113
  Transmission Date: 20140711
  Serious: Yes (Other)
  Sender: FDA-Public Use
  Company Number: A1048988A

PATIENT
  Age: 47 Year
  Sex: Female

DRUGS (1)
  1. METHYLCELLULOSE [Suspect]

REACTIONS (1)
  - Diabetes mellitus [None]
